FAERS Safety Report 13720000 (Version 2)
Quarter: 2017Q3

REPORT INFORMATION
  Report Type: Spontaneous
  Country: US (occurrence: US)
  Receive Date: 20170705
  Receipt Date: 20170815
  Transmission Date: 20171127
  Serious: No
  Sender: FDA-Public Use
  Company Number: US-BIOGEN-2017BI00423284

PATIENT
  Sex: Female

DRUGS (1)
  1. TYSABRI [Suspect]
     Active Substance: NATALIZUMAB
     Indication: MULTIPLE SCLEROSIS
     Route: 065
     Dates: start: 20160407

REACTIONS (6)
  - Headache [Unknown]
  - Pain in extremity [Unknown]
  - Drug dose omission [Unknown]
  - Eye pain [Unknown]
  - Malaise [Recovered/Resolved]
  - Vomiting [Unknown]
